FAERS Safety Report 24834878 (Version 10)
Quarter: 2025Q3

REPORT INFORMATION
  Report Type: Report from Study
  Country: CA (occurrence: CA)
  Receive Date: 20250113
  Receipt Date: 20250902
  Transmission Date: 20251020
  Serious: Yes (Hospitalization, Other)
  Sender: TAKEDA
  Company Number: CA-TAKEDA-2025TUS002938

PATIENT
  Sex: Female

DRUGS (33)
  1. VEDOLIZUMAB [Suspect]
     Active Substance: VEDOLIZUMAB
     Indication: Colitis ulcerative
  2. VEDOLIZUMAB [Suspect]
     Active Substance: VEDOLIZUMAB
     Dosage: 300 MILLIGRAM, Q4WEEKS
  3. VEDOLIZUMAB [Suspect]
     Active Substance: VEDOLIZUMAB
     Dosage: 300 MILLIGRAM, Q4WEEKS
  4. VEDOLIZUMAB [Suspect]
     Active Substance: VEDOLIZUMAB
     Dosage: 300 MILLIGRAM, Q4WEEKS
  5. VEDOLIZUMAB [Suspect]
     Active Substance: VEDOLIZUMAB
     Dosage: 300 MILLIGRAM, Q4WEEKS
  6. DEXILANT [Suspect]
     Active Substance: DEXLANSOPRAZOLE
     Indication: Product used for unknown indication
  7. APIXABAN [Concomitant]
     Active Substance: APIXABAN
     Indication: Anticoagulant therapy
  8. CUVITRU [Concomitant]
     Active Substance: HUMAN IMMUNOGLOBULIN G
  9. SALINE [Concomitant]
     Active Substance: SODIUM CHLORIDE
  10. XOLAIR [Concomitant]
     Active Substance: OMALIZUMAB
     Indication: Immunosuppressant drug therapy
  11. IVABRADINE [Concomitant]
     Active Substance: IVABRADINE
  12. MIDODRINE [Concomitant]
     Active Substance: MIDODRINE
  13. MESTINON [Concomitant]
     Active Substance: PYRIDOSTIGMINE BROMIDE
  14. RUPATADINE FUMARATE [Concomitant]
     Active Substance: RUPATADINE FUMARATE
  15. FAMOTIDINE [Concomitant]
     Active Substance: FAMOTIDINE
  16. SINGULAIR [Concomitant]
     Active Substance: MONTELUKAST SODIUM
  17. CROMOLYN SODIUM [Concomitant]
     Active Substance: CROMOLYN SODIUM
  18. KETOTIFEN [Concomitant]
     Active Substance: KETOTIFEN
  19. VENTOLIN [Concomitant]
     Active Substance: ALBUTEROL SULFATE
  20. SYMBICORT [Concomitant]
     Active Substance: BUDESONIDE\FORMOTEROL FUMARATE DIHYDRATE
  21. ATROVENT [Concomitant]
     Active Substance: IPRATROPIUM BROMIDE
  22. FLUTICASONE FUROATE [Concomitant]
     Active Substance: FLUTICASONE FUROATE
  23. ZOFRAN [Concomitant]
     Active Substance: ONDANSETRON HYDROCHLORIDE
  24. Serc [Concomitant]
  25. CAMBIA [Concomitant]
     Active Substance: DICLOFENAC POTASSIUM
  26. LINACLOTIDE [Concomitant]
     Active Substance: LINACLOTIDE
  27. PRUCALOPRIDE [Concomitant]
     Active Substance: PRUCALOPRIDE
  28. BOTOX [Concomitant]
     Active Substance: ONABOTULINUMTOXINA
     Indication: Migraine
  29. GABAPENTIN [Concomitant]
     Active Substance: GABAPENTIN
  30. HYDROXYCHLOROQUINE [Concomitant]
     Active Substance: HYDROXYCHLOROQUINE
  31. PREDNISONE [Concomitant]
     Active Substance: PREDNISONE
  32. BENADRYL [Concomitant]
     Active Substance: DIPHENHYDRAMINE HYDROCHLORIDE
     Indication: Anaphylaxis treatment
  33. EPIPEN [Concomitant]
     Active Substance: EPINEPHRINE

REACTIONS (8)
  - Colitis ulcerative [Unknown]
  - Vascular device infection [Unknown]
  - Postoperative wound infection [Unknown]
  - Cellulitis [Unknown]
  - Rectal haemorrhage [Unknown]
  - Product dose omission issue [Unknown]
  - Frequent bowel movements [Unknown]
  - Sinusitis [Unknown]
